FAERS Safety Report 4289431-0 (Version None)
Quarter: 2004Q1

REPORT INFORMATION
  Report Type: 
  Country: None (occurrence: None)
  Receive Date: 20040206
  Receipt Date: 20040122
  Transmission Date: 20041129
  Serious: Yes (Other)
  Sender: FDA-Public Use
  Company Number: 2004-UK-00060UK

PATIENT
  Age: 64 Year
  Sex: Female

DRUGS (5)
  1. SPIRIVA [Suspect]
     Indication: CHRONIC OBSTRUCTIVE AIRWAYS DISEASE
     Dosage: 1 ANZ (18 MCG, ONCE DAILY) IH
     Route: 055
     Dates: start: 20031023, end: 20040110
  2. HUMULIN M3 (INSULIN HUMAN) [Concomitant]
  3. SALBUTAMOL (SALBUTAMOL) [Concomitant]
  4. SODIUM CHLORIDE 0.9% [Concomitant]
  5. SERETIDE (SERETIDE MITE) [Concomitant]

REACTIONS (2)
  - CONDITION AGGRAVATED [None]
  - DIABETES MELLITUS [None]
